FAERS Safety Report 8571571-9 (Version None)
Quarter: 2012Q3

REPORT INFORMATION
  Report Type: 
  Country: None (occurrence: None)
  Receive Date: 20120806
  Receipt Date: 20120724
  Transmission Date: 20120928
  Serious: Yes (Hospitalization)
  Sender: FDA-Public Use
  Company Number: BE-MILLENNIUM PHARMACEUTICALS, INC.-2012-05183

PATIENT

DRUGS (10)
  1. ACETYLSALICYLIC ACID SRT [Concomitant]
     Dosage: UNK
     Dates: start: 20060301
  2. AMLODIPINE [Concomitant]
     Indication: HYPERTENSION
     Dosage: UNK
     Dates: start: 20060301
  3. LACTULOSE [Concomitant]
     Indication: CONSTIPATION
     Dosage: UNK
     Dates: start: 20110317
  4. CYCLOPHOSPHAMIDE [Suspect]
     Indication: MULTIPLE MYELOMA
     Dosage: 1000 MG, UNK
     Route: 042
     Dates: start: 20110311, end: 20110318
  5. TAMSULOSINE HCL A [Concomitant]
     Indication: PROSTATIC OBSTRUCTION
     Dosage: UNK
     Dates: start: 20100302
  6. DEXAMETHASONE [Suspect]
     Indication: MULTIPLE MYELOMA
     Dosage: 40 MG, UNK
     Route: 048
     Dates: start: 20110511, end: 20110522
  7. AMIODARONE HCL [Concomitant]
     Indication: SINUS BRADYCARDIA
     Dosage: UNK
     Dates: start: 20060301
  8. VELCADE [Suspect]
     Indication: MULTIPLE MYELOMA
     Dosage: 2.5 MG, UNK
     Route: 042
     Dates: start: 20110311, end: 20110321
  9. PRAVASTATIN [Concomitant]
     Indication: HYPERLIPIDAEMIA
     Dosage: UNK
     Dates: start: 20080101
  10. ALENDRONATE SODIUM [Concomitant]
     Indication: OSTEOPOROSIS
     Dosage: UNK
     Dates: start: 20081210

REACTIONS (1)
  - DIVERTICULITIS [None]
